FAERS Safety Report 10732697 (Version 1)
Quarter: 2015Q1

REPORT INFORMATION
  Report Type: Report from Study
  Country: US (occurrence: US)
  Receive Date: 20150123
  Receipt Date: 20150123
  Transmission Date: 20150721
  Serious: Yes (Other)
  Sender: FDA-Public Use
  Company Number: US-BAYER-2015-006939

PATIENT
  Age: 20 Year
  Sex: Female

DRUGS (1)
  1. MIRENA [Suspect]
     Active Substance: LEVONORGESTREL
     Indication: CONTRACEPTION
     Dosage: 20 ?G/D, CONT
     Route: 015

REACTIONS (6)
  - Drug ineffective [None]
  - Premature separation of placenta [None]
  - Pregnancy with contraceptive device [None]
  - Abortion spontaneous [None]
  - Amniotic fluid volume decreased [None]
  - Foetal heart rate abnormal [None]

NARRATIVE: CASE EVENT DATE: 2014
